FAERS Safety Report 23431857 (Version 2)
Quarter: 2024Q1

REPORT INFORMATION
  Report Type: Spontaneous
  Country: US (occurrence: US)
  Receive Date: 20240123
  Receipt Date: 20240126
  Transmission Date: 20240410
  Serious: No
  Sender: FDA-Public Use
  Company Number: US-OPELLA-2024OHG001523

PATIENT

DRUGS (1)
  1. GOLD BOND MEDICATED ORIGINAL STRENGTH BODY [Suspect]
     Active Substance: MENTHOL
     Indication: Product used for unknown indication
     Dosage: STRENGTH: 169,5 MG; 5,65 G/113 G

REACTIONS (3)
  - Drug ineffective [Unknown]
  - Product quality issue [Unknown]
  - No adverse event [Unknown]
